FAERS Safety Report 7722501-0 (Version None)
Quarter: 2011Q3

REPORT INFORMATION
  Report Type: 
  Country: None (occurrence: None)
  Receive Date: 20110831
  Receipt Date: 20110816
  Transmission Date: 20111222
  Serious: Yes (Hospitalization)
  Sender: FDA-Public Use
  Company Number: TW-BAYER-2011-074244

PATIENT
  Age: 71 Year
  Sex: Male

DRUGS (3)
  1. CLOPIDOGREL [Suspect]
     Indication: ANTIPLATELET THERAPY
     Dosage: FOR FIRST 3 MONTHS ONLY
  2. ASPIRIN [Suspect]
     Indication: ANTIPLATELET THERAPY
  3. ASPIRIN [Suspect]
     Indication: CAROTID ARTERY DISEASE
     Dosage: 100 MG, QD
     Route: 048

REACTIONS (2)
  - EMBOLIC STROKE [None]
  - THROMBOSIS IN DEVICE [None]
